FAERS Safety Report 17771270 (Version 1)
Quarter: 2020Q2

REPORT INFORMATION
  Report Type: Spontaneous
  Country: US (occurrence: US)
  Receive Date: 20200512
  Receipt Date: 20200512
  Transmission Date: 20200714
  Serious: No
  Sender: FDA-Public Use
  Company Number: None

PATIENT
  Age: 70 Year
  Sex: Male
  Weight: 72.9 kg

DRUGS (1)
  1. DEFINITY [Suspect]
     Active Substance: PERFLUTREN
     Indication: SCAN WITH CONTRAST
     Dosage: ?          OTHER FREQUENCY:HOUR;?
     Route: 041

REACTIONS (1)
  - Back pain [None]

NARRATIVE: CASE EVENT DATE: 20200512
